FAERS Safety Report 9577349 (Version 1)
Quarter: 2013Q4

REPORT INFORMATION
  Report Type: Spontaneous
  Country: US (occurrence: US)
  Receive Date: 20131001
  Receipt Date: 20131001
  Transmission Date: 20140711
  Serious: No
  Sender: FDA-Public Use
  Company Number: US-AMGEN-USASP2013007356

PATIENT
  Sex: Female
  Weight: 57.14 kg

DRUGS (6)
  1. ENBREL [Suspect]
     Indication: PSORIATIC ARTHROPATHY
     Dosage: 50 MG, QWK
     Route: 058
  2. METHOTREXATE [Concomitant]
     Dosage: 2.5 MG, UNK
  3. VITAMIN E                          /00110501/ [Concomitant]
     Dosage: 200 UNIT, UNK
  4. VITAMIN D                          /00107901/ [Concomitant]
     Dosage: 400 UNIT, UNK
  5. FOLIC ACID [Concomitant]
     Dosage: UNK
  6. BIOTIN [Concomitant]
     Dosage: 5 MG, UNK

REACTIONS (1)
  - Injection site bruising [Unknown]
